FAERS Safety Report 9238407 (Version 1)
Quarter: 2013Q2

REPORT INFORMATION
  Report Type: Spontaneous
  Country: CN (occurrence: CN)
  Receive Date: 20130418
  Receipt Date: 20130418
  Transmission Date: 20140414
  Serious: Yes (Other)
  Sender: FDA-Public Use
  Company Number: CN-BRISTOL-MYERS SQUIBB COMPANY-18713495

PATIENT
  Age: 32 Year
  Sex: Female

DRUGS (1)
  1. BARACLUDE [Suspect]
     Route: 048
     Dates: start: 201210

REACTIONS (3)
  - Abortion induced [Unknown]
  - Vaginal haemorrhage [Unknown]
  - Pregnancy [Recovered/Resolved]
